FAERS Safety Report 25626539 (Version 1)
Quarter: 2025Q3

REPORT INFORMATION
  Report Type: Other
  Country: EU (occurrence: EU)
  Receive Date: 20250731
  Receipt Date: 20250731
  Transmission Date: 20251021
  Serious: Yes (Congenital Anomaly)
  Sender: ZYDUS PHARM
  Company Number: None

PATIENT

DRUGS (4)
  1. AMLODIPINE [Suspect]
     Active Substance: AMLODIPINE BESYLATE
     Indication: Hypertension
     Route: 064
  2. ARANESP [Suspect]
     Active Substance: DARBEPOETIN ALFA
     Indication: Anaemia
     Route: 064
  3. PLAQUENIL [Suspect]
     Active Substance: HYDROXYCHLOROQUINE SULFATE
     Indication: Lupus-like syndrome
     Route: 064
  4. NULOJIX [Suspect]
     Active Substance: BELATACEPT
     Indication: Prophylaxis against graft versus host disease
     Route: 064
     Dates: end: 20250220

REACTIONS (2)
  - Microcephaly [Not Recovered/Not Resolved]
  - Foetal exposure during pregnancy [Recovered/Resolved]

NARRATIVE: CASE EVENT DATE: 20250601
